FAERS Safety Report 14480419 (Version 1)
Quarter: 2018Q1

REPORT INFORMATION
  Report Type: Spontaneous
  Country: CN (occurrence: CN)
  Receive Date: 20180202
  Receipt Date: 20180202
  Transmission Date: 20180509
  Serious: Yes (Hospitalization)
  Sender: FDA-Public Use
  Company Number: CN-PFIZER INC-2018045489

PATIENT
  Age: 4 Week
  Sex: Male
  Weight: 1.64 kg

DRUGS (2)
  1. SODIUM CHLORIDE. [Concomitant]
     Active Substance: SODIUM CHLORIDE
     Indication: VEHICLE SOLUTION USE
     Dosage: UNK
     Route: 041
     Dates: start: 20171212, end: 20171213
  2. DIFLUCAN [Suspect]
     Active Substance: FLUCONAZOLE
     Indication: ANTIFUNGAL PROPHYLAXIS
     Dosage: 11 MG, 1X/3 DAYS
     Route: 041
     Dates: start: 20171212, end: 20171213

REACTIONS (2)
  - Fungal infection [Unknown]
  - Condition aggravated [Unknown]

NARRATIVE: CASE EVENT DATE: 20171213
